FAERS Safety Report 9556539 (Version 1)
Quarter: 2013Q3

REPORT INFORMATION
  Report Type: Spontaneous
  Country: US (occurrence: None)
  Receive Date: 20130815
  Receipt Date: 20130815
  Transmission Date: 20140515
  Serious: Yes (Other)
  Sender: FDA-Public Use
  Company Number: ADR-2012-01808

PATIENT
  Sex: Female

DRUGS (3)
  1. BACLOFEN INTRATHECAL [Suspect]
     Indication: SPINAL PAIN
  2. ORAL BACLOFEN [Concomitant]
  3. FENTANYL [Concomitant]

REACTIONS (6)
  - Back pain [None]
  - Open fracture [None]
  - Diarrhoea [None]
  - Drug withdrawal syndrome [None]
  - Fall [None]
  - Paraesthesia [None]
